FAERS Safety Report 8336228-8 (Version None)
Quarter: 2012Q2

REPORT INFORMATION
  Report Type: 
  Country: None (occurrence: None)
  Receive Date: 20120504
  Receipt Date: 20120426
  Transmission Date: 20120825
  Serious: Yes (Hospitalization, Other)
  Sender: FDA-Public Use
  Company Number: US-US-EMD SERONO, INC.-232576K08USA

PATIENT
  Sex: Female
  Weight: 136 kg

DRUGS (12)
  1. REBIF [Suspect]
     Route: 058
     Dates: start: 20120220
  2. TIZANIDINE HCL [Concomitant]
     Indication: MUSCLE SPASMS
     Dates: end: 20081101
  3. SOLU-MEDROL [Concomitant]
     Indication: MULTIPLE SCLEROSIS RELAPSE
     Route: 042
     Dates: start: 20080601, end: 20080601
  4. SOLU-MEDROL [Concomitant]
     Route: 042
     Dates: start: 20080701, end: 20080701
  5. MEDROL [Concomitant]
     Indication: MULTIPLE SCLEROSIS RELAPSE
     Route: 048
     Dates: start: 20080801, end: 20080801
  6. PREDNISONE TAB [Concomitant]
     Indication: MULTIPLE SCLEROSIS RELAPSE
     Dates: start: 20080901, end: 20081015
  7. IBUPROFEN (ADVIL) [Suspect]
     Indication: PROPHYLAXIS
  8. ASPIRIN [Suspect]
     Indication: PROPHYLAXIS
  9. LEXAPRO [Concomitant]
     Indication: PRODUCT USED FOR UNKNOWN INDICATION
  10. REBIF [Suspect]
     Route: 058
     Dates: end: 20081106
  11. REBIF [Suspect]
     Route: 058
     Dates: start: 20081203, end: 20110801
  12. REBIF [Suspect]
     Indication: MULTIPLE SCLEROSIS
     Route: 058
     Dates: start: 20080312

REACTIONS (15)
  - LIGAMENT RUPTURE [None]
  - HEPATIC ENZYME INCREASED [None]
  - HEART RATE INCREASED [None]
  - MULTIPLE SCLEROSIS RELAPSE [None]
  - INFLUENZA LIKE ILLNESS [None]
  - ANXIETY [None]
  - FALL [None]
  - SLEEP DISORDER [None]
  - COLON POLYPECTOMY [None]
  - GASTRIC ULCER [None]
  - WEIGHT INCREASED [None]
  - GASTRITIS [None]
  - BLOOD PRESSURE DIASTOLIC INCREASED [None]
  - BENIGN OESOPHAGEAL NEOPLASM [None]
  - DIARRHOEA [None]
